FAERS Safety Report 19865261 (Version 1)
Quarter: 2021Q3

REPORT INFORMATION
  Report Type: Report from Study
  Country: None (occurrence: TR)
  Receive Date: 20210921
  Receipt Date: 20210921
  Transmission Date: 20211014
  Serious: Yes (Hospitalization)
  Sender: FDA-Public Use
  Company Number: TR-ABBVIE-21K-161-4084605-00

PATIENT
  Age: 84 Year
  Sex: Female
  Weight: 54 kg

DRUGS (5)
  1. MADOPAR HBS [Concomitant]
     Active Substance: BENSERAZIDE HYDROCHLORIDE\LEVODOPA
     Indication: PARKINSON^S DISEASE
     Route: 048
     Dates: start: 2017
  2. CEDRINA [Concomitant]
     Indication: DEPRESSION
     Route: 048
     Dates: start: 2017
  3. PK MERZ [Concomitant]
     Active Substance: AMANTADINE SULFATE
     Indication: PARKINSON^S DISEASE
     Route: 048
     Dates: start: 2015
  4. DUODOPA [Suspect]
     Active Substance: CARBIDOPA\LEVODOPA
     Indication: PARKINSON^S DISEASE
     Dosage: MORNING DOSE (ML): 3.70 CONTINUOUS DOSE (ML): 2.20 EXTRA DOSE (ML): 5.00
     Route: 050
     Dates: start: 20171102
  5. DUODOPA [Suspect]
     Active Substance: CARBIDOPA\LEVODOPA

REACTIONS (2)
  - Haemorrhoids [Recovered/Resolved]
  - Haematochezia [Recovered/Resolved]

NARRATIVE: CASE EVENT DATE: 20210817
